FAERS Safety Report 6057526-7 (Version None)
Quarter: 2009Q1

REPORT INFORMATION
  Report Type: 
  Country: None (occurrence: None)
  Receive Date: 20090129
  Receipt Date: 20090119
  Transmission Date: 20090719
  Serious: Yes (Hospitalization)
  Sender: FDA-Public Use
  Company Number: FR-ROCHE-580837

PATIENT
  Sex: Female

DRUGS (8)
  1. FUZEON [Suspect]
     Indication: DRUG USE FOR UNKNOWN INDICATION
     Route: 048
     Dates: start: 20080505
  2. BACTRIM [Suspect]
     Indication: OPPORTUNISTIC INFECTION
     Route: 048
     Dates: start: 20080404, end: 20080414
  3. KALETRA [Suspect]
     Indication: HIV INFECTION
     Route: 048
     Dates: start: 20080505
  4. TRUVADA [Suspect]
     Indication: HIV INFECTION
     Route: 048
     Dates: start: 20080505
  5. PENTACARINAT [Concomitant]
     Route: 055
     Dates: start: 20080222
  6. SPECIAFOLDINE [Concomitant]
     Indication: MALNUTRITION
     Route: 048
     Dates: start: 20080422
  7. MALOCIDE [Concomitant]
     Indication: TOXOPLASMOSIS
     Route: 048
     Dates: start: 20080422
  8. AZADOSE [Concomitant]
     Indication: PROPHYLAXIS
     Route: 048
     Dates: start: 20080422

REACTIONS (1)
  - ACUTE FEBRILE NEUTROPHILIC DERMATOSIS [None]
